FAERS Safety Report 8426916-7 (Version None)
Quarter: 2012Q2

REPORT INFORMATION
  Report Type: 
  Country: None (occurrence: None)
  Receive Date: 20120323
  Receipt Date: 20110519
  Transmission Date: 20120825
  Serious: Yes (Other)
  Sender: FDA-Public Use
  Company Number: 163-21880-11043607

PATIENT
  Age: 52 Year
  Sex: Male

DRUGS (2)
  1. REVLIMID [Suspect]
     Indication: PARAPROTEINAEMIA
     Dosage: 25 MG, 1 IN 1 D, PO 10 MG, DAILY X 28, PO
     Route: 048
     Dates: start: 20100218
  2. REVLIMID [Suspect]
     Indication: PARAPROTEINAEMIA
     Dosage: 25 MG, 1 IN 1 D, PO 10 MG, DAILY X 28, PO
     Route: 048
     Dates: start: 20100801, end: 20110418

REACTIONS (1)
  - SYNCOPE [None]
